FAERS Safety Report 8270935-0 (Version None)
Quarter: 2012Q2

REPORT INFORMATION
  Report Type: 
  Country: None (occurrence: None)
  Receive Date: 20120410
  Receipt Date: 20120404
  Transmission Date: 20120825
  Serious: Yes (Other)
  Sender: FDA-Public Use
  Company Number: US-PFIZER INC-2012085767

PATIENT
  Sex: Male

DRUGS (1)
  1. VIAGRA [Suspect]
     Indication: PENIS DISORDER
     Dosage: 60MG EIGHT TIMES A DAY
     Route: 048
     Dates: start: 20120301

REACTIONS (2)
  - TESTICULAR DISORDER [None]
  - MEDICATION ERROR [None]
